FAERS Safety Report 9037284 (Version 1)
Quarter: 2013Q1

REPORT INFORMATION
  Report Type: Report from Study
  Country: US (occurrence: US)
  Receive Date: 20130129
  Receipt Date: 20130129
  Transmission Date: 20140127
  Serious: No
  Sender: FDA-Public Use
  Company Number: US-ABBOTT-12P-163-0894305-00

PATIENT
  Age: 35 Year
  Sex: Female
  Weight: 51.3 kg

DRUGS (6)
  1. HUMIRA 40 MG/0.8 ML PEN [Suspect]
     Indication: PSORIATIC ARTHROPATHY
     Dates: start: 200909, end: 201007
  2. HUMIRA 40 MG/0.8 ML PEN [Suspect]
     Dates: start: 201112
  3. PREDNISONE [Concomitant]
     Indication: PSORIATIC ARTHROPATHY
  4. PRENATAL VITAMINS [Concomitant]
     Indication: PRODUCT USED FOR UNKNOWN INDICATION
  5. PROGESTERONE [Concomitant]
     Indication: PROPHYLAXIS
  6. PROGESTERONE [Concomitant]
     Indication: ABORTION SPONTANEOUS

REACTIONS (2)
  - Dysphonia [Recovering/Resolving]
  - Increased upper airway secretion [Recovered/Resolved]
